FAERS Safety Report 16678460 (Version 3)
Quarter: 2020Q4

REPORT INFORMATION
  Report Type: Spontaneous
  Country: US (occurrence: US)
  Receive Date: 20190807
  Receipt Date: 20201021
  Transmission Date: 20210113
  Serious: Yes (Other)
  Sender: FDA-Public Use
  Company Number: US-PFIZER INC-2018532777

PATIENT
  Age: 43 Year
  Sex: Female
  Weight: 54.42 kg

DRUGS (6)
  1. LYRICA CR [Suspect]
     Active Substance: PREGABALIN
     Indication: FIBROMYALGIA
  2. ABILIFY [Concomitant]
     Active Substance: ARIPIPRAZOLE
     Indication: RESTLESS LEGS SYNDROME
     Dosage: UNK
  3. FLUDROCORTISONE [Concomitant]
     Active Substance: FLUDROCORTISONE
     Indication: ORTHOSTATIC HYPOTENSION
     Dosage: UNK
  4. LYRICA CR [Suspect]
     Active Substance: PREGABALIN
     Indication: NEURITIS
  5. LYRICA CR [Suspect]
     Active Substance: PREGABALIN
     Indication: NEURALGIA
     Dosage: 330 MG, ONCE DAILY
     Route: 048
  6. CYMBALTA [Concomitant]
     Active Substance: DULOXETINE HYDROCHLORIDE
     Indication: NEURALGIA
     Dosage: 60 MG

REACTIONS (3)
  - Sleep disorder [Unknown]
  - Bipolar disorder [Unknown]
  - Mental disorder [Unknown]
